FAERS Safety Report 17297684 (Version 1)
Quarter: 2020Q1

REPORT INFORMATION
  Report Type: Spontaneous
  Country: ES (occurrence: ES)
  Receive Date: 20200122
  Receipt Date: 20200122
  Transmission Date: 20200409
  Serious: Yes (Hospitalization)
  Sender: FDA-Public Use
  Company Number: ES-TEVA-2020-ES-1171360

PATIENT
  Age: 33 Year
  Sex: Female

DRUGS (4)
  1. LAMOTRIGINA (2579A) [Suspect]
     Active Substance: LAMOTRIGINE
     Dosage: 25 MG 1-0-1
     Route: 048
     Dates: start: 20190306, end: 20190316
  2. IBUPROFENO (1769A) [Suspect]
     Active Substance: IBUPROFEN
     Indication: PATELLA FRACTURE
     Dosage: 1-1-1; 600 MG
     Route: 048
     Dates: start: 20190307, end: 20190327
  3. METAMIZOL (111A) [Suspect]
     Active Substance: METAMIZOL SODIUM
     Indication: PAIN
     Dosage: 200 MG
     Route: 042
     Dates: start: 20190314, end: 20190316
  4. LAMOTRIGINA (2579A) [Suspect]
     Active Substance: LAMOTRIGINE
     Dosage: 25 MG
     Route: 048
     Dates: start: 20190220, end: 20190305

REACTIONS (1)
  - Drug reaction with eosinophilia and systemic symptoms [Recovered/Resolved]

NARRATIVE: CASE EVENT DATE: 20190315
